FAERS Safety Report 7264956-4 (Version None)
Quarter: 2011Q1

REPORT INFORMATION
  Report Type: 
  Country: None (occurrence: None)
  Receive Date: 20110131
  Receipt Date: 20110124
  Transmission Date: 20110831
  Serious: Yes (Other)
  Sender: FDA-Public Use
  Company Number: US-JNJFOC-20101207561

PATIENT
  Sex: Female
  Weight: 62.6 kg

DRUGS (8)
  1. ELMIRON [Suspect]
     Indication: CYSTITIS INTERSTITIAL
     Route: 048
  2. ARIMIDEX [Concomitant]
     Indication: CHEMOTHERAPY
     Route: 048
  3. MAGNESIUM [Concomitant]
     Indication: MEDICAL DIET
     Route: 048
  4. MIACALCIN [Concomitant]
     Indication: BONE DENSITY ABNORMAL
     Dosage: ONE SPRAY IN ONE NASAL
     Route: 045
  5. LAXATIVES [Concomitant]
     Indication: CONSTIPATION
     Route: 048
  6. MULTI-VITAMINS [Concomitant]
     Indication: MEDICAL DIET
     Route: 048
  7. MEFLOQUINE HCL [Concomitant]
     Indication: MALARIA PROPHYLAXIS
     Dosage: MALARIA PROPHYLAXIS FOR TRAVEL
     Route: 048
  8. CALCIUM [Concomitant]
     Indication: MEDICAL DIET
     Route: 048

REACTIONS (5)
  - NAUSEA [None]
  - BLOOD URINE PRESENT [None]
  - POLLAKIURIA [None]
  - URINE ODOUR ABNORMAL [None]
  - INAPPROPRIATE SCHEDULE OF DRUG ADMINISTRATION [None]
